FAERS Safety Report 6482977-6 (Version None)
Quarter: 2009Q4

REPORT INFORMATION
  Report Type: 
  Country: None (occurrence: None)
  Receive Date: 20091209
  Receipt Date: 20091127
  Transmission Date: 20100525
  Serious: Yes (Other)
  Sender: FDA-Public Use
  Company Number: CA-JNJFOC-20090201524

PATIENT
  Sex: Male
  Weight: 101.1 kg

DRUGS (2)
  1. REMICADE [Suspect]
     Dosage: 6 INFUSIONS TOTAL
     Route: 042
     Dates: start: 20081216, end: 20091014
  2. REMICADE [Suspect]
     Indication: CROHN'S DISEASE
     Dosage: 1 INFUSION (DOSE NOT GIVEN 03-FEB-2009)
     Route: 042
     Dates: start: 20081216, end: 20091014

REACTIONS (1)
  - PROCTITIS [None]
